FAERS Safety Report 20292143 (Version 1)
Quarter: 2022Q1

REPORT INFORMATION
  Report Type: Spontaneous
  Country: US (occurrence: None)
  Receive Date: 20220104
  Receipt Date: 20220104
  Transmission Date: 20220424
  Serious: Yes (Other)
  Sender: FDA-Public Use
  Company Number: None

PATIENT
  Age: 73 Year
  Sex: Female
  Weight: 75.19 kg

DRUGS (15)
  1. IBRANCE [Suspect]
     Active Substance: PALBOCICLIB
     Indication: Breast cancer
     Dosage: FREQUENCY : DAILY;?
     Route: 048
     Dates: start: 20201023
  2. MELOXICAM [Concomitant]
     Active Substance: MELOXICAM
  3. ONDANSETRON [Concomitant]
     Active Substance: ONDANSETRON
  4. OMEPRAZOLE [Concomitant]
     Active Substance: OMEPRAZOLE
  5. ALPRAZOLAM [Concomitant]
     Active Substance: ALPRAZOLAM
  6. AMLODIPINE [Concomitant]
     Active Substance: AMLODIPINE BESYLATE
  7. ipratopium/albuterol [Concomitant]
  8. CELEXA [Concomitant]
     Active Substance: CITALOPRAM HYDROBROMIDE
  9. lopermaide [Concomitant]
  10. METOPROLOL [Concomitant]
     Active Substance: METOPROLOL
  11. OXYCODONE [Concomitant]
     Active Substance: OXYCODONE
  12. PROCHLORPERAZINE [Concomitant]
     Active Substance: PROCHLORPERAZINE
  13. ROPINIROLE [Concomitant]
     Active Substance: ROPINIROLE
  14. TAMOXIFEN [Concomitant]
     Active Substance: TAMOXIFEN
  15. TRAZODONE [Concomitant]
     Active Substance: TRAZODONE HYDROCHLORIDE

REACTIONS (2)
  - Nausea [None]
  - Decreased appetite [None]

NARRATIVE: CASE EVENT DATE: 20220104
